FAERS Safety Report 15195237 (Version 2)
Quarter: 2018Q4

REPORT INFORMATION
  Report Type: Spontaneous
  Country: FR (occurrence: FR)
  Receive Date: 20180725
  Receipt Date: 20180820
  Transmission Date: 20190204
  Serious: Yes (Other)
  Sender: FDA-Public Use
  Company Number: FR-SA-2018SA171350

PATIENT
  Age: 73 Year
  Sex: Male

DRUGS (7)
  1. ZYMAD [Concomitant]
     Active Substance: CHOLECALCIFEROL
  2. TENORETIC [Concomitant]
     Active Substance: ATENOLOL\CHLORTHALIDONE
     Dosage: UNK
     Dates: start: 2003
  3. IRBESARTAN. [Concomitant]
     Active Substance: IRBESARTAN
     Dosage: UNK
     Dates: start: 2017
  4. JANUMET [Interacting]
     Active Substance: METFORMIN HYDROCHLORIDE\SITAGLIPTIN PHOSPHATE
     Indication: TYPE 2 DIABETES MELLITUS
     Dosage: UNK UNK, UNK
     Route: 048
     Dates: start: 20180326, end: 20180528
  5. INEXIUM [ESOMEPRAZOLE MAGNESIUM] [Concomitant]
     Dosage: UNK UNK, UNK
     Route: 065
     Dates: start: 2003
  6. VESICARE [Concomitant]
     Active Substance: SOLIFENACIN SUCCINATE
  7. APROVEL [Suspect]
     Active Substance: IRBESARTAN
     Route: 065

REACTIONS (6)
  - Drug interaction [Unknown]
  - Tenoplasty [Unknown]
  - Polyarthritis [Unknown]
  - Seronegative arthritis [Unknown]
  - Angioedema [Unknown]
  - Shoulder arthroplasty [Unknown]

NARRATIVE: CASE EVENT DATE: 20180406
